FAERS Safety Report 5767292-8 (Version None)
Quarter: 2008Q2

REPORT INFORMATION
  Report Type: 
  Country: None (occurrence: None)
  Receive Date: 20080612
  Receipt Date: 20080602
  Transmission Date: 20081010
  Serious: Yes (Other)
  Sender: FDA-Public Use
  Company Number: GB-ELI_LILLY_AND_COMPANY-GB200806000724

PATIENT
  Age: 39 Year
  Sex: Male

DRUGS (1)
  1. CIALIS [Suspect]
     Dosage: 10 MG, UNKNOWN
     Route: 065
     Dates: start: 20070101

REACTIONS (1)
  - RETINAL VEIN OCCLUSION [None]
